FAERS Safety Report 23424487 (Version 1)
Quarter: 2024Q1

REPORT INFORMATION
  Report Type: Spontaneous
  Country: GB (occurrence: GB)
  Receive Date: 20240120
  Receipt Date: 20240120
  Transmission Date: 20240410
  Serious: Yes (Hospitalization, Other)
  Sender: FDA-Public Use
  Company Number: GB-Accord-381850

PATIENT
  Age: 32 Year
  Sex: Female

DRUGS (6)
  1. TACROLIMUS [Suspect]
     Active Substance: TACROLIMUS
     Indication: Interstitial lung disease
  2. PREDNISOLONE [Suspect]
     Active Substance: PREDNISOLONE
     Indication: Interstitial lung disease
  3. FLUTICASONE [Suspect]
     Active Substance: FLUTICASONE
     Indication: Dyspnoea exertional
  4. SALMETEROL [Suspect]
     Active Substance: SALMETEROL
     Indication: Dyspnoea exertional
  5. TINZAPARIN SODIUM [Suspect]
     Active Substance: TINZAPARIN SODIUM
     Indication: Dyspnoea exertional
  6. METHYLPREDNISOLONE [Concomitant]
     Active Substance: METHYLPREDNISOLONE
     Indication: Myopathy

REACTIONS (3)
  - Maternal exposure during pregnancy [Unknown]
  - Lower respiratory tract infection [Unknown]
  - Off label use [Unknown]
